FAERS Safety Report 5781662-3 (Version None)
Quarter: 2008Q2

REPORT INFORMATION
  Report Type: 
  Country: None (occurrence: None)
  Receive Date: 20080623
  Receipt Date: 20080613
  Transmission Date: 20081010
  Serious: Yes (Life-Threatening)
  Sender: FDA-Public Use
  Company Number: GB-ROCHE-570529

PATIENT
  Age: 27 Year
  Sex: Female

DRUGS (4)
  1. ISOTRETINOIN [Suspect]
     Indication: ACNE
     Route: 048
     Dates: start: 20080101, end: 20080527
  2. ACETAMINOPHEN [Suspect]
     Indication: DRUG USE FOR UNKNOWN INDICATION
     Dosage: PATIENT TOOK A SUDDEN PARACETAMOL OVERDOSE
     Route: 065
  3. YASMIN [Concomitant]
     Indication: ACNE
     Dosage: THIS DRUG WAS ALSO TAKEN FOR ORAL CONTRACEPTION
     Route: 048
     Dates: start: 20070404, end: 20070527
  4. YASMIN [Concomitant]
     Dosage: THIS DRUG WAS ALSO TAKEN FOR ORAL CONTRACEPTION
     Route: 048
     Dates: start: 20070404, end: 20070527

REACTIONS (1)
  - INTENTIONAL OVERDOSE [None]
